FAERS Safety Report 7114623-2 (Version None)
Quarter: 2010Q4

REPORT INFORMATION
  Report Type: 
  Country: None (occurrence: None)
  Receive Date: 20101121
  Receipt Date: 20101108
  Transmission Date: 20110411
  Serious: Yes (Hospitalization, Other)
  Sender: FDA-Public Use
  Company Number: US-ELI_LILLY_AND_COMPANY-US201009002288

PATIENT
  Sex: Female

DRUGS (2)
  1. CYMBALTA [Suspect]
     Indication: DEPRESSION
     Dosage: 60 MEQ, DAILY (1/D)
  2. HYDROCODONE [Concomitant]
     Indication: PAIN

REACTIONS (5)
  - FALL [None]
  - FRACTURE [None]
  - JOINT DISLOCATION [None]
  - LUNG DISORDER [None]
  - MUSCLE INJURY [None]
